FAERS Safety Report 25099197 (Version 6)
Quarter: 2025Q2

REPORT INFORMATION
  Report Type: Report from Study
  Country: US (occurrence: US)
  Receive Date: 20250320
  Receipt Date: 20250627
  Transmission Date: 20250717
  Serious: Yes (Hospitalization, Other)
  Sender: BAYER HEALTHCARE PHARMACEUTICALS INC.
  Company Number: US-BAYER-2025A032394

PATIENT
  Age: 72 Year
  Sex: Male
  Weight: 120.18 kg

DRUGS (31)
  1. ADEMPAS [Suspect]
     Active Substance: RIOCIGUAT
     Indication: Pulmonary arterial hypertension
     Dates: start: 20250305
  2. ADEMPAS [Suspect]
     Active Substance: RIOCIGUAT
     Indication: Pulmonary arterial hypertension
     Dosage: 1.0 MG, TID
     Route: 048
  3. ADEMPAS [Suspect]
     Active Substance: RIOCIGUAT
     Indication: Pulmonary arterial hypertension
     Dosage: 1.0 MG, TID
     Route: 048
     Dates: start: 20250305
  4. ADEMPAS [Suspect]
     Active Substance: RIOCIGUAT
     Indication: Pulmonary arterial hypertension
     Dosage: 1.0 MG, TID
     Dates: start: 20250309
  5. ADEMPAS [Suspect]
     Active Substance: RIOCIGUAT
     Indication: Pulmonary arterial hypertension
     Dosage: 0.5 MG, TID
     Route: 048
  6. ADEMPAS [Suspect]
     Active Substance: RIOCIGUAT
     Indication: Pulmonary arterial hypertension
     Dosage: 1.5 MG, TID
     Route: 048
  7. ADEMPAS [Suspect]
     Active Substance: RIOCIGUAT
     Indication: Pulmonary arterial hypertension
     Dosage: 2 MG, TID
     Route: 048
  8. ADEMPAS [Suspect]
     Active Substance: RIOCIGUAT
     Indication: Pulmonary arterial hypertension
     Dosage: 2.5 MG, TID
     Route: 048
  9. UPTRAVI [Suspect]
     Active Substance: SELEXIPAG
  10. ELIQUIS [Suspect]
     Active Substance: APIXABAN
  11. VITAMIN C [Concomitant]
     Active Substance: ASCORBIC ACID
  12. TAMSULOSIN HYDROCHLORIDE [Concomitant]
     Active Substance: TAMSULOSIN HYDROCHLORIDE
  13. TYLENOL [Concomitant]
     Active Substance: ACETAMINOPHEN
  14. BASAGLAR KWIKPEN [Concomitant]
     Active Substance: INSULIN GLARGINE
  15. BACLOFEN [Concomitant]
     Active Substance: BACLOFEN
  16. WELLBUTRIN XL [Concomitant]
     Active Substance: BUPROPION HYDROCHLORIDE
  17. PRAVASTATIN SODIUM [Concomitant]
     Active Substance: PRAVASTATIN SODIUM
  18. FLONASE ALLERGY RELIEF [Concomitant]
     Active Substance: FLUTICASONE PROPIONATE
  19. SILDENAFIL CITRATE [Concomitant]
     Active Substance: SILDENAFIL CITRATE
  20. WINREVAIR [Concomitant]
     Active Substance: SOTATERCEPT-CSRK
     Dates: start: 20250309
  21. MELATONIN [Concomitant]
     Active Substance: MELATONIN
  22. OXYGEN [Concomitant]
     Active Substance: OXYGEN
  23. DILTIAZEM [Concomitant]
     Active Substance: DILTIAZEM
  24. ZINC [Concomitant]
     Active Substance: ZINC
  25. BUMETANIDE [Concomitant]
     Active Substance: BUMETANIDE
  26. CORTISONE [Concomitant]
     Active Substance: CORTISONE
  27. VALSARTAN [Concomitant]
     Active Substance: VALSARTAN
  28. LANTUS SOLOSTAR [Concomitant]
     Active Substance: INSULIN GLARGINE
  29. DICLOFENAC SODIUM [Concomitant]
     Active Substance: DICLOFENAC SODIUM
  30. TREPROSTINIL [Concomitant]
     Active Substance: TREPROSTINIL
  31. GABAPENTIN [Concomitant]
     Active Substance: GABAPENTIN

REACTIONS (23)
  - Pleural effusion [None]
  - Blood pressure decreased [Not Recovered/Not Resolved]
  - Syncope [None]
  - Oedema peripheral [Not Recovered/Not Resolved]
  - Hospitalisation [None]
  - Pain in extremity [None]
  - Erythema [None]
  - Skin warm [None]
  - Vertigo positional [None]
  - Flushing [None]
  - Eyelid ptosis [None]
  - Vertigo [Not Recovered/Not Resolved]
  - Fall [None]
  - Infection [None]
  - Hypotension [Recovered/Resolved]
  - Peripheral swelling [Not Recovered/Not Resolved]
  - Dizziness [None]
  - Dizziness postural [Not Recovered/Not Resolved]
  - Dizziness [None]
  - Chronic obstructive pulmonary disease [None]
  - Drug ineffective [None]
  - Haemorrhage [None]
  - Neuralgia [None]

NARRATIVE: CASE EVENT DATE: 20250101
